FAERS Safety Report 5952281-0 (Version None)
Quarter: 2008Q4

REPORT INFORMATION
  Report Type: 
  Country: None (occurrence: None)
  Receive Date: 20081113
  Receipt Date: 20081107
  Transmission Date: 20090506
  Serious: Yes (Hospitalization, Other)
  Sender: FDA-Public Use
  Company Number: US-ASTRAZENECA-2008UW25078

PATIENT
  Age: 55 Year
  Sex: Female
  Weight: 82.1 kg

DRUGS (3)
  1. SEROQUEL [Suspect]
     Indication: PSYCHOTIC DISORDER
     Dosage: 800 MG - 400 MG
     Route: 048
  2. KLONOPIN [Concomitant]
  3. PROZAC [Concomitant]

REACTIONS (7)
  - ABDOMINAL PAIN [None]
  - BLOOD POTASSIUM INCREASED [None]
  - BREAST CANCER [None]
  - CONSTIPATION [None]
  - MENTAL DISORDER [None]
  - MICTURITION DISORDER [None]
  - RENAL IMPAIRMENT [None]
